FAERS Safety Report 5196939-2 (Version None)
Quarter: 2006Q4

REPORT INFORMATION
  Report Type: 
  Country: None (occurrence: None)
  Receive Date: 20061227
  Receipt Date: 20061212
  Transmission Date: 20070319
  Serious: Yes (Hospitalization)
  Sender: FDA-Public Use
  Company Number: 2006149853

PATIENT
  Age: 42 Year
  Sex: Female
  Weight: 17.1006 kg

DRUGS (4)
  1. GEODON [Suspect]
     Dosage: 40 MG (DAILY), ORAL
     Route: 048
     Dates: start: 20061101, end: 20061207
  2. TEGRETOL [Suspect]
     Dosage: 800 MG (400 MG, 2 IN 1 D), ORAL
     Route: 048
     Dates: start: 20050101, end: 20061201
  3. LAMICTAL [Concomitant]
  4. EPILIM (VALPROATE SODIUM) [Concomitant]

REACTIONS (1)
  - INAPPROPRIATE ANTIDIURETIC HORMONE SECRETION [None]
